FAERS Safety Report 13995664 (Version 1)
Quarter: 2017Q3

REPORT INFORMATION
  Report Type: Spontaneous
  Country: US (occurrence: US)
  Receive Date: 20170921
  Receipt Date: 20170921
  Transmission Date: 20171128
  Serious: No
  Sender: FDA-Public Use
  Company Number: US-PFIZER INC-2016392734

PATIENT
  Age: 66 Year
  Sex: Female
  Weight: 72.56 kg

DRUGS (17)
  1. ALL DAY ALLERGY [Concomitant]
     Active Substance: CETIRIZINE HYDROCHLORIDE
     Dosage: 10 MG, 2X/DAY
     Route: 048
  2. FEMARA [Concomitant]
     Active Substance: LETROZOLE
     Dosage: 2.5 MG, DAILY
     Route: 048
  3. IBRANCE [Suspect]
     Active Substance: PALBOCICLIB
     Dosage: 75 MG, CYCLIC, (21 DAYS ON AND 7 DAYS OFF)
     Route: 048
     Dates: start: 20160901
  4. DECADRON [Concomitant]
     Active Substance: DEXAMETHASONE
     Dosage: 8 MG, 2X/DAY, (TAKE 2 TABLETS BY MOUTH 2 TIMES A DAY FOR 5 DOSES)
     Route: 048
  5. FLONASE [Concomitant]
     Active Substance: FLUTICASONE PROPIONATE
     Dosage: UNK UNK, 2X/DAY, (50 MCG/ACTUATION NASL SPSN), (USE 1 SPRAY IN EACH NOSTRIL)
     Route: 045
  6. IBRANCE [Suspect]
     Active Substance: PALBOCICLIB
     Indication: BREAST CANCER METASTATIC
     Dosage: 100 MG, UNK
  7. EMLA [Concomitant]
     Active Substance: LIDOCAINE\PRILOCAINE
     Dosage: UNK UNK, AS NEEDED, [(LIDOCAINE: 2.5%)/(PRILOCAINE: 2.5 %)]
     Route: 061
  8. DOXPEN [Concomitant]
     Indication: IDIOPATHIC ANGIOEDEMA
     Dosage: 25 MG, 1X/DAY, (TAKING FOR MAYBE 20 YEARS)
  9. XELODA [Concomitant]
     Active Substance: CAPECITABINE
     Dosage: 2500 MG, DAILY, (2 TABLETS ORALLY IN EVERY MORNING AND 3 IN THE EVENING)
     Route: 048
  10. XELODA [Concomitant]
     Active Substance: CAPECITABINE
     Dosage: 1000 MG, 2X/DAY, (2 TABLETS BY MOUTH)
     Route: 048
  11. DAPSONE. [Concomitant]
     Active Substance: DAPSONE
     Indication: IDIOPATHIC ANGIOEDEMA
     Dosage: 25 MG, 2X/DAY (ALLOW 5 WORKING DAYS)
  12. XANAX [Concomitant]
     Active Substance: ALPRAZOLAM
     Indication: ANXIETY
     Dosage: 0.25 MG, AS NEEDED, (TAKE 1 TABLET BY MOUTH 2 TIMES A DAY)
     Route: 048
  13. ATIVAN [Concomitant]
     Active Substance: LORAZEPAM
     Indication: NAUSEA
     Dosage: 1 MG, AS NEEDED, (1 TABLET ORALLY EVERY 6-8 HRS)
     Route: 048
  14. ZOFRAN [Concomitant]
     Active Substance: ONDANSETRON HYDROCHLORIDE
     Indication: NAUSEA
     Dosage: 8 MG, AS NEEDED, (1 TABLET BY MOUTH EVERY 8 HOURS)
     Route: 048
  15. COMPAZINE [Concomitant]
     Active Substance: PROCHLORPERAZINE MALEATE
     Indication: NAUSEA
     Dosage: 10 MG, AS NEEDED, (EVERY 4-6 HRS AS NEEDED )
     Route: 048
  16. SINEQUAN [Concomitant]
     Active Substance: DOXEPIN HYDROCHLORIDE
     Dosage: 25 MG, 2X/DAY
     Route: 048
  17. DAPSONE. [Concomitant]
     Active Substance: DAPSONE
     Dosage: 25 MG, 1X/DAY (TAKING FOR MAYBE 20 YEARS)

REACTIONS (1)
  - Neoplasm progression [Unknown]
